FAERS Safety Report 4783825-2 (Version None)
Quarter: 2005Q3

REPORT INFORMATION
  Report Type: 
  Country: None (occurrence: None)
  Receive Date: 20050929
  Receipt Date: 20050926
  Transmission Date: 20060218
  Serious: Yes (Hospitalization)
  Sender: FDA-Public Use
  Company Number: US-MERCK-0509USA03593

PATIENT
  Age: 53 Year
  Sex: Female

DRUGS (8)
  1. VIOXX [Suspect]
     Route: 048
  2. INDERAL [Concomitant]
     Route: 065
  3. PREDNISONE [Concomitant]
     Route: 065
  4. CALTRATE [Concomitant]
     Route: 065
  5. ALLEGRA [Concomitant]
     Route: 065
  6. ACIPHEX [Concomitant]
     Route: 065
  7. VICODIN [Concomitant]
     Route: 065
  8. ASPIRIN [Concomitant]
     Route: 065

REACTIONS (14)
  - CONVULSION [None]
  - CORONARY ARTERY DISEASE [None]
  - DYSPNOEA EXERTIONAL [None]
  - GASTROOESOPHAGEAL REFLUX DISEASE [None]
  - HEADACHE [None]
  - HYPERCHOLESTEROLAEMIA [None]
  - HYPERTENSION [None]
  - NAUSEA [None]
  - NERVOUSNESS [None]
  - PAIN IN EXTREMITY [None]
  - SLEEP APNOEA SYNDROME [None]
  - SYNCOPE [None]
  - TACHYCARDIA [None]
  - THROMBOSIS [None]
